FAERS Safety Report 11509602 (Version 1)
Quarter: 2015Q3

REPORT INFORMATION
  Report Type: Spontaneous
  Country: US (occurrence: US)
  Receive Date: 20150915
  Receipt Date: 20150915
  Transmission Date: 20151125
  Serious: No
  Sender: FDA-Public Use
  Company Number: US-JNJFOC-20150720102

PATIENT
  Age: 3 Year
  Sex: Female

DRUGS (2)
  1. CHILDREN^S MOTRIN ORAL SUSPENSION [Concomitant]
     Indication: PYREXIA
     Route: 048
     Dates: start: 20150726
  2. CHILDRENS TYLENOL [Suspect]
     Active Substance: ACETAMINOPHEN
     Indication: PYREXIA
     Route: 048
     Dates: start: 20150726

REACTIONS (2)
  - Accidental overdose [None]
  - Incorrect dose administered [Unknown]

NARRATIVE: CASE EVENT DATE: 20150726
